FAERS Safety Report 7957433-6 (Version None)
Quarter: 2011Q4

REPORT INFORMATION
  Report Type: 
  Country: None (occurrence: None)
  Receive Date: 20111205
  Receipt Date: 20111129
  Transmission Date: 20120403
  Serious: Yes (Other)
  Sender: FDA-Public Use
  Company Number: IT-PFIZER INC-2011291704

PATIENT
  Sex: Male

DRUGS (2)
  1. TRAZODONE HCL [Suspect]
  2. VFEND [Suspect]

REACTIONS (1)
  - SEDATION [None]
